FAERS Safety Report 12651664 (Version 1)
Quarter: 2016Q3

REPORT INFORMATION
  Report Type: Spontaneous
  Country: JP (occurrence: JP)
  Receive Date: 20160815
  Receipt Date: 20160815
  Transmission Date: 20161109
  Serious: Yes (Disabling)
  Sender: FDA-Public Use
  Company Number: JP-PFIZER INC-2016380639

PATIENT
  Age: 69 Year
  Sex: Female

DRUGS (1)
  1. JZOLOFT 25MG [Suspect]
     Active Substance: SERTRALINE HYDROCHLORIDE
     Dosage: UNK
     Route: 048
     Dates: start: 201305, end: 201409

REACTIONS (6)
  - Mastication disorder [Unknown]
  - Dysuria [Unknown]
  - Tardive dyskinesia [Unknown]
  - Dyslalia [Unknown]
  - Dysphagia [Unknown]
  - Urinary retention [Unknown]
